FAERS Safety Report 6529021-X (Version None)
Quarter: 2009Q4

REPORT INFORMATION
  Report Type: 
  Country: None (occurrence: None)
  Receive Date: 20091229
  Receipt Date: 20091221
  Transmission Date: 20100525
  Serious: Yes (Hospitalization)
  Sender: FDA-Public Use
  Company Number: 2009US004156

PATIENT
  Age: 92 Year
  Sex: Female

DRUGS (13)
  1. VESICARE [Suspect]
     Indication: DRUG USE FOR UNKNOWN INDICATION
     Dosage: 5 MG, UID/QD, ORAL
     Route: 048
     Dates: start: 20091005
  2. SYNTHROID [Concomitant]
  3. ARICEPT [Concomitant]
  4. AGGRENOX (ACETYLSALICYLIC ACID, DIPYRIDAMOLE) CAPSULE [Concomitant]
  5. SPIRIVA [Concomitant]
  6. NOVO-FERROGLUC (FERROUS GLUCONATE) [Concomitant]
  7. LIPITOR [Concomitant]
  8. RATIO-METFORMIN (METFORMIN HYDROCHLORIDE) [Concomitant]
  9. SOFLAX (DOCUSATE SODIUM) [Concomitant]
  10. RATIO-CITALOPRAM (CITALOPRAM HYDROBROMIDE) [Concomitant]
  11. APO-BROMOCRIPTINE (BROMOCRIPTINE MESILATE) [Concomitant]
  12. RAMIPRIL [Concomitant]
  13. FOSAVANCE (ALENDRONATE SODIUM, COLECALCIFEROL) [Concomitant]

REACTIONS (3)
  - FACE OEDEMA [None]
  - FLUID RETENTION [None]
  - PULMONARY OEDEMA [None]
